FAERS Safety Report 5766600-1 (Version None)
Quarter: 2008Q2

REPORT INFORMATION
  Report Type: 
  Country: None (occurrence: None)
  Receive Date: 20080609
  Receipt Date: 20080527
  Transmission Date: 20081010
  Serious: Yes (Life-Threatening, Hospitalization)
  Sender: FDA-Public Use
  Company Number: GXKR2008US04890

PATIENT
  Age: 79 Year
  Sex: Male

DRUGS (10)
  1. SIMVASTATIN [Suspect]
  2. FLUCONAZOLE [Suspect]
  3. THIAMINE (THIAMINE) [Concomitant]
  4. FOLIC ACID [Concomitant]
  5. INSULIN (INSULIN) [Concomitant]
  6. LISINOPRIL [Concomitant]
  7. TERAZOSIN HCL [Concomitant]
  8. TOLTERODINE TARTRATE [Concomitant]
  9. GOSERELIN (GOSERELIN) [Concomitant]
  10. MOMETASONE (MOMETASONE) [Concomitant]

REACTIONS (11)
  - CEREBROVASCULAR ACCIDENT [None]
  - DRUG INTERACTION [None]
  - DYSPHAGIA [None]
  - EMPHYSEMA [None]
  - HAEMOGLOBIN DECREASED [None]
  - MASTICATION DISORDER [None]
  - MYOGLOBINURIA [None]
  - PLATELET COUNT INCREASED [None]
  - RENAL FAILURE ACUTE [None]
  - RHABDOMYOLYSIS [None]
  - SPEECH DISORDER [None]
